FAERS Safety Report 7674040-3 (Version None)
Quarter: 2011Q3

REPORT INFORMATION
  Report Type: 
  Country: None (occurrence: None)
  Receive Date: 20110808
  Receipt Date: 20110722
  Transmission Date: 20111222
  Serious: Yes (Other)
  Sender: FDA-Public Use
  Company Number: 2011MA009428

PATIENT
  Age: 70 Year
  Sex: Female
  Weight: 70.3075 kg

DRUGS (16)
  1. NEXIUM [Concomitant]
  2. VALIUM [Concomitant]
  3. LYRICA [Concomitant]
  4. NEURONTIN [Concomitant]
  5. ACETYLSALICYLIC ACID SRT [Concomitant]
  6. LORAZEPAM [Concomitant]
  7. MAXZIDE [Concomitant]
  8. ZETIA [Concomitant]
  9. PHENERGAN HCL [Concomitant]
  10. METOCLOPRAMIDE [Suspect]
     Indication: GASTROOESOPHAGEAL REFLUX DISEASE
     Dosage: 10 MG; TID;
     Dates: start: 20080821
  11. LEXAPRO [Concomitant]
  12. LISINOPRIL [Concomitant]
  13. AMITRIPTYLINE HCL [Concomitant]
  14. CIPROFLOXACIN [Concomitant]
  15. GABAPENTIN [Concomitant]
  16. SINEMET [Concomitant]

REACTIONS (38)
  - GAIT DISTURBANCE [None]
  - ARTHRALGIA [None]
  - EAR INFECTION [None]
  - LUMBAR RADICULOPATHY [None]
  - BLOOD CREATININE INCREASED [None]
  - NAUSEA [None]
  - PHARYNGITIS [None]
  - FATIGUE [None]
  - HEAD TITUBATION [None]
  - PARKINSON'S DISEASE [None]
  - CONFUSIONAL STATE [None]
  - HEADACHE [None]
  - BACK PAIN [None]
  - ERUCTATION [None]
  - INTERVERTEBRAL DISC DEGENERATION [None]
  - TREMOR [None]
  - COGWHEEL RIGIDITY [None]
  - PYREXIA [None]
  - TARDIVE DYSKINESIA [None]
  - PAIN IN JAW [None]
  - IRRITABILITY [None]
  - HYPOTENSION [None]
  - BLOOD UREA INCREASED [None]
  - AKATHISIA [None]
  - MYALGIA [None]
  - INSOMNIA [None]
  - EAR PAIN [None]
  - GASTROINTESTINAL DISORDER [None]
  - THROAT IRRITATION [None]
  - PAIN [None]
  - HYPOAESTHESIA [None]
  - NERVOUSNESS [None]
  - NUCLEAR MAGNETIC RESONANCE IMAGING BRAIN ABNORMAL [None]
  - DEPRESSION [None]
  - CARPAL TUNNEL SYNDROME [None]
  - UPPER RESPIRATORY TRACT INFECTION [None]
  - ANXIETY [None]
  - ABSCESS [None]
